FAERS Safety Report 13591096 (Version 1)
Quarter: 2017Q2

REPORT INFORMATION
  Report Type: Spontaneous
  Country: CH (occurrence: CH)
  Receive Date: 20170530
  Receipt Date: 20170530
  Transmission Date: 20170830
  Serious: Yes (Other)
  Sender: FDA-Public Use
  Company Number: CH-SUN PHARMACEUTICAL INDUSTRIES LTD-2017RR-141697

PATIENT
  Sex: Female

DRUGS (2)
  1. SORAFENIB [Suspect]
     Active Substance: SORAFENIB
     Indication: MENINGIOMA
     Route: 065
     Dates: start: 2011
  2. OCTREOTIDE. [Suspect]
     Active Substance: OCTREOTIDE
     Indication: MENINGIOMA
     Route: 065

REACTIONS (2)
  - Drug ineffective [Unknown]
  - Encephalomyelitis [Unknown]
